FAERS Safety Report 23146431 (Version 1)
Quarter: 2023Q4

REPORT INFORMATION
  Report Type: Spontaneous
  Country: US (occurrence: US)
  Receive Date: 20231104
  Receipt Date: 20231104
  Transmission Date: 20240110
  Serious: No
  Sender: FDA-Public Use
  Company Number: US-GLENMARK PHARMACEUTICALS-2023GMK085187

PATIENT

DRUGS (1)
  1. RYALTRIS [Suspect]
     Active Substance: MOMETASONE FUROATE MONOHYDRATE\OLOPATADINE HYDROCHLORIDE
     Indication: Seasonal allergy
     Dosage: UNK UNK, BID, INSTILL 1 TO 2 SPRAYS IN EACH NOSTRIL
     Route: 045
     Dates: start: 20230629

REACTIONS (2)
  - Nasal dryness [Recovered/Resolved]
  - Epistaxis [Recovered/Resolved]
